FAERS Safety Report 8928992 (Version 1)
Quarter: 2012Q4

REPORT INFORMATION
  Report Type: Spontaneous
  Country: BE (occurrence: None)
  Receive Date: 20121120
  Receipt Date: 20121120
  Transmission Date: 20130627
  Serious: Yes (Hospitalization)
  Sender: FDA-Public Use
  Company Number: DKLU1086253

PATIENT
  Age: 6 Year
  Sex: Male
  Weight: 20.5 kg

DRUGS (7)
  1. COSMEGEN [Suspect]
     Indication: NEOPLASM MALIGNANT
     Dosage: day 1
     Route: 042
  2. BEVACIZUMAB [Suspect]
     Indication: NEOPLASM MALIGNANT
     Dosage: day 1
     Route: 042
     Dates: start: 20120414
  3. VINCRISTINE [Suspect]
     Indication: NEOPLASM MALIGNANT
     Dosage: day 1
     Route: 042
     Dates: start: 20120414
  4. IFOSFAMIDE [Suspect]
     Indication: NEOPLASM MALIGNANT
     Dosage: day 1 and 2
     Route: 042
     Dates: start: 20120414
  5. DOXORUBICIN [Suspect]
     Indication: NEOPLASM MALIGNANT
     Dosage: /SQ. meter, day 1 and 2,(not otherwise specified)
     Route: 042
     Dates: start: 20120414
  6. ZOVIRAX (ACICLOVIR) [Concomitant]
  7. EUSAPRIM FORTE (BACTRIM) [Concomitant]

REACTIONS (2)
  - Anal fissure [None]
  - Pain [None]
